FAERS Safety Report 16390073 (Version 1)
Quarter: 2019Q2

REPORT INFORMATION
  Report Type: Spontaneous
  Country: JP (occurrence: JP)
  Receive Date: 20190604
  Receipt Date: 20190604
  Transmission Date: 20190711
  Serious: Yes (Other)
  Sender: FDA-Public Use
  Company Number: PHHY2018JP041946

PATIENT
  Age: 87 Year
  Sex: Female

DRUGS (1)
  1. NOVASTAN [Suspect]
     Active Substance: ARGATROBAN
     Indication: CEREBROVASCULAR ACCIDENT
     Dosage: UNK
     Route: 041

REACTIONS (1)
  - Haemorrhagic infarction [Recovered/Resolved]
